FAERS Safety Report 16006917 (Version 2)
Quarter: 2019Q2

REPORT INFORMATION
  Report Type: Spontaneous
  Country: US (occurrence: US)
  Receive Date: 20190226
  Receipt Date: 20190402
  Transmission Date: 20190711
  Serious: Yes (Other)
  Sender: FDA-Public Use
  Company Number: US-PFIZER INC-2019072992

PATIENT
  Age: 48 Year
  Sex: Male
  Weight: 97.52 kg

DRUGS (1)
  1. LYRICA [Suspect]
     Active Substance: PREGABALIN
     Indication: GLOSSOPHARYNGEAL NEURALGIA
     Dosage: 200 MG, 3X/DAY
     Route: 048
     Dates: start: 2018

REACTIONS (10)
  - Impaired work ability [Unknown]
  - Dysphagia [Unknown]
  - Product use in unapproved indication [Unknown]
  - Movement disorder [Unknown]
  - Seizure [Unknown]
  - Screaming [Unknown]
  - Eating disorder [Unknown]
  - Pain [Unknown]
  - Impaired driving ability [Unknown]
  - Dysarthria [Unknown]
